FAERS Safety Report 6346357-6 (Version None)
Quarter: 2009Q3

REPORT INFORMATION
  Report Type: 
  Country: None (occurrence: None)
  Receive Date: 20090909
  Receipt Date: 20090904
  Transmission Date: 20100115
  Serious: Yes (Hospitalization)
  Sender: FDA-Public Use
  Company Number: US-PFIZER INC-2004097792

PATIENT
  Sex: Female
  Weight: 83 kg

DRUGS (10)
  1. SUNITINIB MALATE [Suspect]
     Indication: RENAL CANCER METASTATIC
     Dosage: 37.5 MG, 1X/DAY
     Route: 048
     Dates: start: 20040714, end: 20041102
  2. DOCUSATE SODIUM [Concomitant]
     Route: 048
     Dates: start: 20040729
  3. GELCLAIR [Concomitant]
     Route: 048
     Dates: start: 20040812
  4. RANITIDINE HCL [Concomitant]
     Route: 048
     Dates: start: 20041103
  5. WARFARIN SODIUM [Concomitant]
     Route: 048
     Dates: start: 20021015
  6. QUINAPRIL HCL [Concomitant]
     Route: 048
     Dates: start: 20021120
  7. CELECOXIB [Concomitant]
     Route: 048
     Dates: start: 20021120
  8. METOPROLOL TARTRATE [Concomitant]
     Route: 048
     Dates: start: 20030924
  9. FUROSEMIDE [Concomitant]
     Route: 048
     Dates: start: 20030924
  10. MONTELUKAST SODIUM [Concomitant]
     Route: 048
     Dates: start: 20020708

REACTIONS (1)
  - INTERNATIONAL NORMALISED RATIO INCREASED [None]
